FAERS Safety Report 6418678-X (Version None)
Quarter: 2009Q4

REPORT INFORMATION
  Report Type: 
  Country: None (occurrence: None)
  Receive Date: 20091026
  Receipt Date: 20091013
  Transmission Date: 20100525
  Serious: Yes (Other)
  Sender: FDA-Public Use
  Company Number: ADR39132009

PATIENT
  Age: 75 Year
  Sex: Male

DRUGS (14)
  1. SIMVASTATIN [Suspect]
     Indication: HYPERCHOLESTEROLAEMIA
     Dosage: 20 MG ORAL
     Route: 048
     Dates: start: 20080401, end: 20081107
  2. ALFACALCIDOL [Concomitant]
  3. ASPIRIN [Concomitant]
  4. BISOPROLOL [Concomitant]
  5. CHLORPHENIRAMINE MALEATE [Concomitant]
  6. EZETIMIBE [Concomitant]
  7. FYBOGEL [Concomitant]
  8. NITROGLYCERIN [Concomitant]
  9. ISMN [Concomitant]
  10. LACTULOSE [Concomitant]
  11. PARACETAMOL [Concomitant]
  12. QUININE SULPHATE [Concomitant]
  13. SENNA [Concomitant]
  14. SEVELAMER [Concomitant]

REACTIONS (2)
  - BLOOD CREATINE PHOSPHOKINASE INCREASED [None]
  - RED BLOOD CELL SEDIMENTATION RATE INCREASED [None]
